FAERS Safety Report 9146272 (Version 1)
Quarter: 2013Q1

REPORT INFORMATION
  Report Type: Spontaneous
  Country: JP (occurrence: JP)
  Receive Date: 20130307
  Receipt Date: 20130307
  Transmission Date: 20140127
  Serious: Yes (Hospitalization)
  Sender: FDA-Public Use
  Company Number: JP-SANOFI-AVENTIS-2013SA020234

PATIENT
  Age: 84 Year
  Sex: Female
  Weight: 43.6 kg

DRUGS (10)
  1. RIFAMPICIN [Suspect]
     Indication: DISSEMINATED TUBERCULOSIS
     Route: 065
     Dates: start: 201202
  2. RIFAMPICIN [Suspect]
     Indication: DISSEMINATED TUBERCULOSIS
     Route: 065
     Dates: start: 2012, end: 2012
  3. PREDNISOLONE [Suspect]
     Indication: PYREXIA
     Route: 065
     Dates: start: 2012, end: 2012
  4. PREDNISOLONE [Suspect]
     Indication: PYREXIA
     Route: 065
     Dates: start: 2012, end: 2012
  5. PREDNISOLONE [Suspect]
     Indication: PYREXIA
     Route: 065
     Dates: start: 2012, end: 2012
  6. PREDNISOLONE [Suspect]
     Indication: PYREXIA
     Route: 065
     Dates: start: 2012, end: 2012
  7. ISONIAZID [Concomitant]
     Indication: DISSEMINATED TUBERCULOSIS
     Dates: start: 201202
  8. ETHAMBUTOL [Concomitant]
     Indication: DISSEMINATED TUBERCULOSIS
  9. CEFMETAZOLE [Concomitant]
     Indication: URINARY TRACT INFECTION
  10. FAMOTIDINE [Concomitant]

REACTIONS (7)
  - Pneumonitis [Recovered/Resolved]
  - Pyrexia [Recovered/Resolved]
  - C-reactive protein increased [Recovered/Resolved]
  - Cell marker increased [Recovered/Resolved]
  - Bronchoalveolar lavage abnormal [Recovered/Resolved]
  - Computerised tomogram abnormal [Recovered/Resolved]
  - Oxygen saturation decreased [Recovered/Resolved]
